FAERS Safety Report 5253697-0 (Version None)
Quarter: 2007Q1

REPORT INFORMATION
  Report Type: 
  Country: None (occurrence: None)
  Receive Date: 20070301
  Receipt Date: 20070220
  Transmission Date: 20070707
  Serious: Yes (Life-Threatening, Hospitalization)
  Sender: FDA-Public Use
  Company Number: GB-MERCK-0702GBR00111

PATIENT
  Age: 75 Year
  Sex: Male
  Weight: 63 kg

DRUGS (12)
  1. ZOCOR [Suspect]
     Indication: CARDIOVASCULAR EVENT PROPHYLAXIS
     Route: 048
     Dates: start: 20051001, end: 20060601
  2. ZOCOR [Suspect]
     Route: 048
     Dates: start: 20050801, end: 20051001
  3. AMIODARONE [Concomitant]
     Indication: VENTRICULAR TACHYCARDIA
     Route: 065
     Dates: start: 20050801
  4. ASPIRIN [Concomitant]
     Indication: MYOCARDIAL INFARCTION
     Route: 065
     Dates: start: 20050801
  5. BISOPROLOL [Concomitant]
     Indication: LEFT VENTRICULAR FAILURE
     Route: 065
     Dates: start: 20050801
  6. BISOPROLOL [Concomitant]
     Indication: MYOCARDIAL INFARCTION
     Route: 065
     Dates: start: 20050801
  7. FUROSEMIDE [Concomitant]
     Indication: LEFT VENTRICULAR FAILURE
     Route: 065
     Dates: start: 20050801
  8. NITROGLYCERIN [Concomitant]
     Route: 065
  9. RAMIPRIL [Concomitant]
     Indication: LEFT VENTRICULAR FAILURE
     Route: 065
     Dates: start: 20050801
  10. RAMIPRIL [Concomitant]
     Indication: MYOCARDIAL INFARCTION
     Route: 065
     Dates: start: 20050801
  11. SPIRONOLACTONE [Concomitant]
     Indication: LEFT VENTRICULAR FAILURE
     Route: 065
     Dates: start: 20050801
  12. SPIRONOLACTONE [Concomitant]
     Indication: MYOCARDIAL INFARCTION
     Route: 065
     Dates: start: 20050801

REACTIONS (6)
  - BLOOD CREATINE PHOSPHOKINASE INCREASED [None]
  - DYSPNOEA [None]
  - EXERCISE TOLERANCE DECREASED [None]
  - LIVER FUNCTION TEST ABNORMAL [None]
  - MYALGIA [None]
  - MYOSITIS [None]
